FAERS Safety Report 15057775 (Version 1)
Quarter: 2018Q2

REPORT INFORMATION
  Report Type: Spontaneous
  Country: GB (occurrence: GB)
  Receive Date: 20180625
  Receipt Date: 20180625
  Transmission Date: 20180711
  Serious: Yes (Hospitalization)
  Sender: FDA-Public Use
  Company Number: GB-ROCHE-2144120

PATIENT
  Age: 38 Year
  Sex: Female
  Weight: 53.3 kg

DRUGS (3)
  1. PREDNISOLONE. [Concomitant]
     Active Substance: PREDNISOLONE
     Route: 065
  2. NAPROXEN. [Concomitant]
     Active Substance: NAPROXEN
     Route: 065
  3. RITUXIMAB. [Suspect]
     Active Substance: RITUXIMAB
     Indication: SYSTEMIC LUPUS ERYTHEMATOSUS
     Dosage: DATE OF MOST RECENT DOSE: 18/DEC/2017
     Route: 042
     Dates: start: 20171108

REACTIONS (6)
  - Pleuritic pain [Unknown]
  - Nausea [Unknown]
  - Decreased appetite [Unknown]
  - Streptococcal bacteraemia [Unknown]
  - Lower respiratory tract infection [Recovering/Resolving]
  - Lethargy [Unknown]

NARRATIVE: CASE EVENT DATE: 20180228
